FAERS Safety Report 9967255 (Version 2)
Quarter: 2014Q1

REPORT INFORMATION
  Report Type: Report from Study
  Country: US (occurrence: US)
  Receive Date: 20140305
  Receipt Date: 20140305
  Transmission Date: 20141002
  Serious: Yes (Hospitalization)
  Sender: FDA-Public Use
  Company Number: US-ABBVIE-13P-163-1103376-00

PATIENT
  Age: 51 Year
  Sex: Female
  Weight: 69.92 kg

DRUGS (12)
  1. HUMIRA [Suspect]
     Indication: CROHN^S DISEASE
     Dosage: ONE DOSE
     Dates: start: 20130329, end: 20130329
  2. HUMIRA [Suspect]
     Dosage: ONE DOSE
     Dates: start: 20130412, end: 20130412
  3. HUMIRA [Suspect]
     Dates: start: 20130426
  4. HUMIRA [Suspect]
     Dates: start: 20130610
  5. TRIPLE ANTIBIOTIC [Suspect]
     Indication: PRODUCT USED FOR UNKNOWN INDICATION
  6. PREDNISONE [Concomitant]
     Indication: CROHN^S DISEASE
  7. NYSTOP [Concomitant]
     Indication: PRODUCT USED FOR UNKNOWN INDICATION
  8. TRIAMCINOLONE ACETONIDE 0.1% CREA [Concomitant]
     Indication: PRODUCT USED FOR UNKNOWN INDICATION
  9. CALCIUM [Concomitant]
     Indication: PRODUCT USED FOR UNKNOWN INDICATION
  10. B12 [Concomitant]
     Indication: PRODUCT USED FOR UNKNOWN INDICATION
     Route: 048
  11. MULTIVITAMINS [Concomitant]
     Indication: PRODUCT USED FOR UNKNOWN INDICATION
     Route: 048
  12. MAGIC MOUTHWASH [Concomitant]
     Indication: PRODUCT USED FOR UNKNOWN INDICATION
     Dates: start: 20130319

REACTIONS (5)
  - Ileostomy closure [Not Recovered/Not Resolved]
  - Rectal haemorrhage [Not Recovered/Not Resolved]
  - Procedural pain [Not Recovered/Not Resolved]
  - Rash [Unknown]
  - Pruritus [Unknown]
